FAERS Safety Report 10367586 (Version 1)
Quarter: 2014Q3

REPORT INFORMATION
  Report Type: Spontaneous
  Country: IT (occurrence: None)
  Receive Date: 20140805
  Receipt Date: 20140805
  Transmission Date: 20150326
  Serious: Yes (Hospitalization)
  Sender: FDA-Public Use
  Company Number: AUR-APL-2014-08326

PATIENT
  Age: 71 Year
  Sex: Male

DRUGS (9)
  1. EUTIROX (LEVOTHYROXINE SODIUM) [Concomitant]
     Active Substance: LEVOTHYROXINE SODIUM
  2. CARDIOASPIRIN (ACETYLSALICYLIC ACID) UNKNOWN [Concomitant]
  3. PANTOPRAZOLO ACTAVIS (PANTOPRAZOLE SODIUM SESQUIHYDRATE) [Concomitant]
  4. AMLODIPIN ACTAVIS /00724202/ (AMLODIPINE BESILATE) [Concomitant]
  5. CLIPIDOGREL ACTAVIS /01220704/ (CLOPIDOGREL) UNKNOWN [Concomitant]
  6. LASIX /00032601/ (FUROSEMIDE) UNKNOWN [Concomitant]
  7. ROSUVASTATIN CALCIUM [Concomitant]
     Active Substance: ROSUVASTATIN CALCIUM
  8. ALDACTONE [Suspect]
     Active Substance: SPIRONOLACTONE
     Indication: PRODUCT USED FOR UNKNOWN INDICATION
     Route: 048
     Dates: start: 20140201, end: 20140320
  9. CARVEDILOL. [Suspect]
     Active Substance: CARVEDILOL
     Indication: PRODUCT USED FOR UNKNOWN INDICATION
     Route: 048
     Dates: start: 20110706, end: 20140320

REACTIONS (3)
  - Hyperkalaemia [None]
  - Atrioventricular block first degree [None]
  - Nodal arrhythmia [None]

NARRATIVE: CASE EVENT DATE: 20140325
